FAERS Safety Report 8955098 (Version 1)
Quarter: 2012Q4

REPORT INFORMATION
  Report Type: Spontaneous
  Country: DK (occurrence: None)
  Receive Date: 20121129
  Receipt Date: 20121129
  Transmission Date: 20130627
  Serious: Yes (Other)
  Sender: FDA-Public Use
  Company Number: 2012MA013578

PATIENT
  Age: 44 Year
  Sex: Female

DRUGS (2)
  1. NAPROXEN [Suspect]
     Indication: ARTHRITIC PAINS
     Route: 048
     Dates: start: 2012, end: 20121102
  2. CITALOPRAM [Concomitant]

REACTIONS (2)
  - Epistaxis [None]
  - Condition aggravated [None]
